FAERS Safety Report 6918625-8 (Version None)
Quarter: 2010Q3

REPORT INFORMATION
  Report Type: 
  Country: None (occurrence: None)
  Receive Date: 20100811
  Receipt Date: 20100802
  Transmission Date: 20110219
  Serious: Yes (Other)
  Sender: FDA-Public Use
  Company Number: US-PFIZER INC-2010097131

PATIENT
  Sex: Female
  Weight: 58.957 kg

DRUGS (5)
  1. CELEBREX [Suspect]
     Indication: OSTEOARTHRITIS
     Dosage: UNK
     Route: 048
  2. CELEBREX [Suspect]
     Dosage: 200 MG, UNK
     Route: 048
     Dates: start: 20100729
  3. LIPITOR [Suspect]
     Indication: BLOOD CHOLESTEROL INCREASED
  4. ALBUTEROL SULFATE [Concomitant]
     Indication: ASTHMA
     Dosage: UNK
  5. ATROVENT [Concomitant]
     Indication: ASTHMA
     Dosage: UNK

REACTIONS (3)
  - BLOOD PRESSURE ABNORMAL [None]
  - PEPTIC ULCER HAEMORRHAGE [None]
  - SURGERY [None]
